FAERS Safety Report 16485674 (Version 1)
Quarter: 2019Q2

REPORT INFORMATION
  Report Type: Spontaneous
  Country: FR (occurrence: FR)
  Receive Date: 20190627
  Receipt Date: 20190627
  Transmission Date: 20190711
  Serious: Yes (Death)
  Sender: FDA-Public Use
  Company Number: FR-MYLANLABS-2019M1059515

PATIENT
  Age: 61 Year
  Sex: Male

DRUGS (7)
  1. OCTREOTIDE HOSPIRA [Concomitant]
     Active Substance: OCTREOTIDE
     Indication: SUBILEUS
     Dosage: UNK
     Route: 042
  2. OMEPRAZOLE MYLAN 40 MG, POUDRE POUR SOLUTION POUR PERFUSION [Suspect]
     Active Substance: OMEPRAZOLE
     Indication: PROPHYLAXIS
     Dosage: UNK
     Route: 042
     Dates: start: 20181206, end: 20181223
  3. VECTIBIX [Suspect]
     Active Substance: PANITUMUMAB
     Indication: ADENOCARCINOMA
     Dosage: 400 MILLIGRAM, CYCLE
     Route: 042
     Dates: start: 20181214, end: 20181214
  4. DOXYCYCLINE SANDOZ                 /00055701/ [Suspect]
     Active Substance: DOXYCYCLINE
     Indication: ACNE
     Dosage: 1 DOSAGE FORM, QD
     Route: 048
     Dates: start: 20181130, end: 20181217
  5. FLUOROURACILE [Suspect]
     Active Substance: FLUOROURACIL
     Indication: ADENOCARCINOMA
     Dosage: 360 MG EN BOLUS PUIS 4250 MG SUR 48H
     Route: 042
     Dates: start: 20181214, end: 20181214
  6. OXALIPLATINE ACCORD [Suspect]
     Active Substance: OXALIPLATIN
     Indication: ADENOCARCINOMA
     Dosage: 150 MILLIGRAM, CYCLE
     Route: 042
  7. METHYLPREDNISOLONE MYLAN           /00049604/ [Concomitant]
     Active Substance: METHYLPREDNISOLONE HEMISUCCINATE
     Indication: SUBILEUS
     Dosage: UNK
     Route: 042

REACTIONS (1)
  - Bone marrow failure [Fatal]

NARRATIVE: CASE EVENT DATE: 20181216
